FAERS Safety Report 9247277 (Version 5)
Quarter: 2020Q4

REPORT INFORMATION
  Report Type: Report from Study
  Country: TW (occurrence: TW)
  Receive Date: 20130423
  Receipt Date: 20201119
  Transmission Date: 20210114
  Serious: Yes (Hospitalization)
  Sender: FDA-Public Use
  Company Number: TW-SHIRE-ALL1-2013-02466

PATIENT
  Age: 8 Year
  Sex: Male
  Weight: 16 kg

DRUGS (13)
  1. IDURSULFASE [Suspect]
     Active Substance: IDURSULFASE
     Dosage: 18 MILLIGRAM, 1X/WEEK
     Route: 041
     Dates: start: 20100903
  2. IDURSULFASE [Suspect]
     Active Substance: IDURSULFASE
     Dosage: 0.63 MILLIGRAM/KILOGRAM, 1/WEEK
     Route: 042
     Dates: start: 20090409
  3. AUGMENTIN [Concomitant]
     Active Substance: AMOXICILLIN\CLAVULANATE POTASSIUM
     Indication: RESPIRATORY DISORDER
     Dosage: 35 ML, 3X/DAY:TID
     Route: 048
     Dates: start: 20100124
  4. CHLORPHENAMINE [Concomitant]
     Active Substance: CHLORPHENIRAMINE MALEATE
     Indication: PREMEDICATION
     Dosage: 2.5 MG, 1X/WEEK
     Route: 042
     Dates: start: 20090320
  5. IDURSULFASE [Suspect]
     Active Substance: IDURSULFASE
     Dosage: 0.5 MILLIGRAM/KILOGRAM, 1X/WEEK
     Route: 042
     Dates: start: 20080310
  6. AMOXICILLIN. [Concomitant]
     Active Substance: AMOXICILLIN
     Indication: ANTI-INFECTIVE THERAPY
     Dosage: 125 MG, 4X/DAY:QID
     Route: 048
     Dates: start: 20100128
  7. IDURSULFASE [Suspect]
     Active Substance: IDURSULFASE
     Indication: MUCOPOLYSACCHARIDOSIS II
     Dosage: 0.5 MILLIGRAM/KILOGRAM, 1X/WEEK
     Route: 042
     Dates: start: 20070208
  8. IDURSULFASE [Suspect]
     Active Substance: IDURSULFASE
     Dosage: 0.37 MILLIGRAM/KILOGRAM, 1X/WEEK
     Route: 041
     Dates: start: 20070802
  9. IDURSULFASE [Suspect]
     Active Substance: IDURSULFASE
     Dosage: 0.5 MG/KG, 1X/WEEK
     Route: 041
     Dates: start: 20110402
  10. IDURSULFASE [Suspect]
     Active Substance: IDURSULFASE
     Dosage: 12 MILLIGRAM, 1X/WEEK
     Route: 041
     Dates: start: 20090320
  11. IDURSULFASE [Suspect]
     Active Substance: IDURSULFASE
     Dosage: 0.5 MILLIGRAM/KILOGRAM, 1X/WEEK
     Route: 042
     Dates: start: 20090904
  12. ROTEC [Concomitant]
     Indication: RESPIRATORY DISORDER
     Dosage: 0.5 DF, 3X/DAY:TID
     Route: 048
     Dates: start: 20100111
  13. ACETAMINOPHEN. [Concomitant]
     Active Substance: ACETAMINOPHEN
     Indication: PAIN
     Dosage: 120 MG, 4X/DAY:QID
     Route: 048
     Dates: start: 20090910

REACTIONS (2)
  - Abdominal pain [Recovered/Resolved]
  - Drug specific antibody absent [Unknown]

NARRATIVE: CASE EVENT DATE: 20110409
